FAERS Safety Report 13594319 (Version 1)
Quarter: 2017Q2

REPORT INFORMATION
  Report Type: Spontaneous
  Country: US (occurrence: US)
  Receive Date: 20170530
  Receipt Date: 20170530
  Transmission Date: 20170830
  Serious: No
  Sender: FDA-Public Use
  Company Number: US-PFIZER INC-2017238168

PATIENT
  Age: 36 Year
  Sex: Female

DRUGS (3)
  1. MOTRIN IB [Concomitant]
     Active Substance: IBUPROFEN
     Dosage: UNK
  2. XELJANZ XR [Suspect]
     Active Substance: TOFACITINIB CITRATE
     Indication: RHEUMATOID ARTHRITIS
     Dosage: 11 MG, DAILY
     Route: 048
     Dates: start: 20161230
  3. LEFLUNOMIDE. [Concomitant]
     Active Substance: LEFLUNOMIDE
     Dosage: UNK

REACTIONS (1)
  - Drug ineffective [Unknown]
